FAERS Safety Report 19005765 (Version 1)
Quarter: 2021Q1

REPORT INFORMATION
  Report Type: Spontaneous
  Country: CN (occurrence: CN)
  Receive Date: 20210314
  Receipt Date: 20210314
  Transmission Date: 20210420
  Serious: Yes (Hospitalization)
  Sender: FDA-Public Use
  Company Number: CN-JNJFOC-20200101828

PATIENT
  Age: 74 Year
  Sex: Male
  Weight: 55 kg

DRUGS (1)
  1. IMODIUM [Suspect]
     Active Substance: LOPERAMIDE HYDROCHLORIDE
     Indication: DIARRHOEA
     Route: 048
     Dates: start: 20191210, end: 20191215

REACTIONS (1)
  - Intestinal obstruction [Recovered/Resolved]

NARRATIVE: CASE EVENT DATE: 20191220
